FAERS Safety Report 6020189-0 (Version None)
Quarter: 2008Q4

REPORT INFORMATION
  Report Type: 
  Country: None (occurrence: None)
  Receive Date: 20081226
  Receipt Date: 20081218
  Transmission Date: 20090506
  Serious: Yes (Death, Hospitalization)
  Sender: FDA-Public Use
  Company Number: US-ROCHE-550927

PATIENT
  Sex: Female
  Weight: 92.5 kg

DRUGS (5)
  1. XELODA [Suspect]
     Dosage: 4 TABLETS TAKEN WITH BREAKFAST AND 4 TAKEN WITH DINNER
     Route: 048
     Dates: start: 20080206, end: 20080213
  2. XELODA [Suspect]
     Dosage: 4 TABLETS TAKEN WITH BREAKFAST AND 4 TAKEN WITH DINNER
     Route: 048
     Dates: start: 20080227, end: 20080229
  3. VITAMIN [Concomitant]
  4. CLARINEX [Concomitant]
     Indication: SEASONAL ALLERGY
  5. ZOMETA [Concomitant]
     Route: 041
     Dates: start: 20070501

REACTIONS (17)
  - BREAST CANCER METASTATIC [None]
  - DECREASED APPETITE [None]
  - DIZZINESS [None]
  - ERUCTATION [None]
  - EYE DISCHARGE [None]
  - FATIGUE [None]
  - FEELING ABNORMAL [None]
  - HYPOTENSION [None]
  - MUSCULOSKELETAL PAIN [None]
  - NAUSEA [None]
  - NECK PAIN [None]
  - OROPHARYNGEAL PAIN [None]
  - PAIN IN JAW [None]
  - PERICARDIAL EFFUSION [None]
  - PULMONARY EMBOLISM [None]
  - THROMBOSIS [None]
  - VOCAL CORD PARALYSIS [None]
